FAERS Safety Report 18029648 (Version 1)
Quarter: 2020Q3

REPORT INFORMATION
  Report Type: Spontaneous
  Country: US (occurrence: US)
  Receive Date: 20200715
  Receipt Date: 20200715
  Transmission Date: 20201103
  Serious: Yes (Death)
  Sender: FDA-Public Use
  Company Number: None

PATIENT
  Age: 74 Year
  Sex: Male
  Weight: 72.57 kg

DRUGS (41)
  1. CEFTAZIDIME. [Concomitant]
     Active Substance: CEFTAZIDIME
  2. TOCILIZUMAB. [Concomitant]
     Active Substance: TOCILIZUMAB
  3. DEXAMETHASONE. [Concomitant]
     Active Substance: DEXAMETHASONE
  4. GUAIFENESIN DM [Concomitant]
     Active Substance: DEXTROMETHORPHAN\DEXTROMETHORPHAN HYDROBROMIDE\GUAIFENESIN
  5. SUCCINYLCHOLINE [Concomitant]
     Active Substance: SUCCINYLCHOLINE
  6. DIG [Concomitant]
  7. NORCO [Concomitant]
     Active Substance: ACETAMINOPHEN\HYDROCODONE BITARTRATE
  8. CEFTRIAXONE. [Concomitant]
     Active Substance: CEFTRIAXONE
  9. CA GLUCONATE [Concomitant]
     Active Substance: CALCIUM GLUCONATE
  10. AMIO [Concomitant]
  11. PIPERACILLIN AND TAZOBACTAM [Concomitant]
     Active Substance: PIPERACILLIN SODIUM\TAZOBACTAM SODIUM
  12. HALDOL [Concomitant]
     Active Substance: HALOPERIDOL
  13. PROMETHAZINE W/CODEINE [Concomitant]
     Active Substance: CODEINE\PROMETHAZINE
  14. DEXTROSE, UNSPECIFIED FORM. [Concomitant]
     Active Substance: DEXTROSE, UNSPECIFIED FORM
  15. MAG SULFATE [Concomitant]
  16. VANCO [Concomitant]
     Active Substance: VANCOMYCIN
  17. K PHOS [Concomitant]
  18. ATROPINE. [Concomitant]
     Active Substance: ATROPINE
  19. REMDESIVIR. [Suspect]
     Active Substance: REMDESIVIR
     Indication: SARS-COV-2 TEST POSITIVE
     Route: 042
     Dates: start: 20200621, end: 20200701
  20. PROPOFOL. [Concomitant]
     Active Substance: PROPOFOL
  21. METRONIDAZOLE. [Concomitant]
     Active Substance: METRONIDAZOLE
  22. AZITHROMYCIN ANHYDROUS. [Concomitant]
     Active Substance: AZITHROMYCIN ANHYDROUS
  23. REGLAN [Concomitant]
     Active Substance: METOCLOPRAMIDE HYDROCHLORIDE
  24. METOPROLOL. [Concomitant]
     Active Substance: METOPROLOL
  25. EPI [Concomitant]
     Active Substance: EPINEPHRINE
  26. KCL [Concomitant]
     Active Substance: POTASSIUM CHLORIDE
  27. LORAZEPAM. [Concomitant]
     Active Substance: LORAZEPAM
  28. SOD BICARB [Concomitant]
  29. NS [Concomitant]
     Active Substance: SODIUM CHLORIDE
  30. VANCO [Concomitant]
     Active Substance: VANCOMYCIN
  31. ACETAMINOPHEN. [Concomitant]
     Active Substance: ACETAMINOPHEN
  32. ENOXAPARIN [Concomitant]
     Active Substance: ENOXAPARIN
  33. REG INSULIN [Concomitant]
  34. KETOROLAC [Concomitant]
     Active Substance: KETOROLAC TROMETHAMINE
  35. ALBUMIN [Concomitant]
     Active Substance: ALBUMIN HUMAN
  36. NOREPINEPHRINE. [Concomitant]
     Active Substance: NOREPINEPHRINE
  37. MEROPENEM. [Concomitant]
     Active Substance: MEROPENEM
  38. BUMEX [Concomitant]
     Active Substance: BUMETANIDE
  39. ZOFRAN [Concomitant]
     Active Substance: ONDANSETRON HYDROCHLORIDE
  40. PROAMATINE [Concomitant]
     Active Substance: MIDODRINE HYDROCHLORIDE
  41. MIDAZOLAM. [Concomitant]
     Active Substance: MIDAZOLAM

REACTIONS (1)
  - Death [None]

NARRATIVE: CASE EVENT DATE: 20200709
